FAERS Safety Report 13637667 (Version 4)
Quarter: 2017Q3

REPORT INFORMATION
  Report Type: Report from Study
  Country: AR (occurrence: AR)
  Receive Date: 20170609
  Receipt Date: 20170926
  Transmission Date: 20171127
  Serious: Yes (Hospitalization)
  Sender: FDA-Public Use
  Company Number: AR-ROCHE-1944229

PATIENT
  Age: 75 Year
  Sex: Female
  Weight: 40 kg

DRUGS (16)
  1. LEXOTANIL [Concomitant]
     Active Substance: BROMAZEPAM
     Indication: INSOMNIA
     Route: 048
  2. METRONIDAZOL [Concomitant]
     Active Substance: METRONIDAZOLE
     Route: 042
     Dates: start: 20170602, end: 20170604
  3. METOCLOPRAMIDE. [Concomitant]
     Active Substance: METOCLOPRAMIDE
     Indication: VOMITING
     Route: 065
     Dates: start: 20170603, end: 20170604
  4. DEXTROSA [Concomitant]
     Dosage: FOR HYDRATION PLAN
     Route: 042
     Dates: start: 20170602, end: 20170612
  5. VENETOCLAX. [Suspect]
     Active Substance: VENETOCLAX
     Indication: CHRONIC LYMPHOCYTIC LEUKAEMIA
     Dosage: 20 MG DAILY DURING CYCLE 1, DAY 22-28; 50 MG DAILY DURING CYCLE 2, DAY 1-7; 100 MG DAILY DURING CYCL
     Route: 048
     Dates: start: 20160712
  6. SODIUM CHLORIDE. [Concomitant]
     Active Substance: SODIUM CHLORIDE
     Dosage: FOR HYDRATION PLAN
     Route: 042
     Dates: start: 20170602, end: 20170612
  7. OBINUTUZUMAB. [Suspect]
     Active Substance: OBINUTUZUMAB
     Indication: CHRONIC LYMPHOCYTIC LEUKAEMIA
     Dosage: 100 MG OR 1000 MG, DEPENDING ON SPLITTING RULES, AT CYCLE 1, DAY 1 (IF 100 MG WAS RECEIVED ON DAY 1,
     Route: 042
     Dates: start: 20160608
  8. RAQUIFEROL [Concomitant]
     Indication: OSTEOPOROSIS
     Route: 048
  9. VANCOMICINA [Concomitant]
     Active Substance: VANCOMYCIN
     Indication: DIARRHOEA INFECTIOUS
     Route: 048
     Dates: start: 20170603, end: 20170605
  10. VANCOMICINA [Concomitant]
     Active Substance: VANCOMYCIN
     Route: 048
     Dates: start: 20170606, end: 20170612
  11. BROMAZEPAM [Concomitant]
     Active Substance: BROMAZEPAM
     Route: 048
     Dates: start: 20170602
  12. METRONIDAZOL [Concomitant]
     Active Substance: METRONIDAZOLE
     Indication: DIARRHOEA INFECTIOUS
     Route: 048
     Dates: start: 20170601, end: 20170702
  13. ORGESTRIOL [Concomitant]
     Route: 067
     Dates: start: 20170201
  14. LOPERAMIDA [Concomitant]
     Route: 048
     Dates: start: 20170529
  15. ENOXAPARIN [Concomitant]
     Active Substance: ENOXAPARIN
     Indication: EMBOLISM
     Route: 058
     Dates: start: 20170602, end: 20170612
  16. VANCOMICINA [Concomitant]
     Active Substance: VANCOMYCIN
     Route: 048
     Dates: start: 20170605, end: 20170606

REACTIONS (1)
  - Pseudomembranous colitis [Recovered/Resolved]

NARRATIVE: CASE EVENT DATE: 20170602
